FAERS Safety Report 19670032 (Version 1)
Quarter: 2021Q3

REPORT INFORMATION
  Report Type: Spontaneous
  Country: US (occurrence: US)
  Receive Date: 20210806
  Receipt Date: 20210806
  Transmission Date: 20211014
  Serious: Yes (Other)
  Sender: FDA-Public Use
  Company Number: US-JNJFOC-20210760989

PATIENT
  Age: 54 Year
  Sex: Female

DRUGS (1)
  1. NEUTROGENA BEACH DEFENSE WATER PLUS SUN PROTECTION SUNSCREEN BROAD SPECTRUM SPF 60 PLUS [Suspect]
     Active Substance: AVOBENZONE\HOMOSALATE\OCTISALATE\OCTOCRYLENE
     Indication: SENSITIVE SKIN
     Dosage: 1 CAN WILL LAST FOR A WEEK OR 10 DAYS DAILY
     Dates: start: 20210426

REACTIONS (2)
  - Pneumonia viral [Not Recovered/Not Resolved]
  - Exposure via inhalation [Not Recovered/Not Resolved]

NARRATIVE: CASE EVENT DATE: 20210426
